FAERS Safety Report 11645730 (Version 3)
Quarter: 2015Q4

REPORT INFORMATION
  Report Type: Report from Study
  Country: US (occurrence: None)
  Receive Date: 20151020
  Receipt Date: 20151104
  Transmission Date: 20160304
  Serious: Yes (Other)
  Sender: FDA-Public Use
  Company Number: US-MDT-ADR-2015-01985

PATIENT
  Age: 64 Year
  Sex: Male

DRUGS (2)
  1. COMPUNDED BACLOFEN INTRATHECAL - 200 MCG/ML [Suspect]
     Active Substance: BACLOFEN
     Indication: PAIN
     Dosage: 150.04 MCG/DAY
  2. DILAUDID [Suspect]
     Active Substance: HYDROMORPHONE HYDROCHLORIDE
     Dosage: 3.0007 MG/DAY

REACTIONS (5)
  - Pain [None]
  - Device malfunction [None]
  - Device occlusion [None]
  - Device issue [None]
  - Infusion site mass [None]
